FAERS Safety Report 22331693 (Version 1)
Quarter: 2023Q2

REPORT INFORMATION
  Report Type: Other
  Country: CN (occurrence: None)
  Receive Date: 20230517
  Receipt Date: 20230517
  Transmission Date: 20230721
  Serious: Yes (Hospitalization, Other)
  Sender: FDA-Public Use
  Company Number: CN-ROCHE-3349995

PATIENT
  Age: 60 Year
  Sex: Female

DRUGS (9)
  1. TARCEVA [Suspect]
     Active Substance: ERLOTINIB HYDROCHLORIDE
     Indication: Squamous cell carcinoma of lung
     Route: 048
     Dates: start: 20200910, end: 202102
  2. TARCEVA [Suspect]
     Active Substance: ERLOTINIB HYDROCHLORIDE
     Indication: Metastases to central nervous system
     Route: 048
     Dates: start: 20210316, end: 2021
  3. BEVACIZUMAB [Suspect]
     Active Substance: BEVACIZUMAB
     Indication: Squamous cell carcinoma of lung
     Route: 041
     Dates: start: 20200910
  4. BEVACIZUMAB [Suspect]
     Active Substance: BEVACIZUMAB
     Indication: Metastases to central nervous system
  5. LEVOFLOXACIN [Concomitant]
     Active Substance: LEVOFLOXACIN
  6. SODIUM HYALURONATE [Concomitant]
     Active Substance: HYALURONATE SODIUM
  7. TACROLIMUS [Concomitant]
     Active Substance: TACROLIMUS
  8. TOBRAMYCIN AND DEXAMETHASONE [Concomitant]
     Active Substance: DEXAMETHASONE\TOBRAMYCIN
  9. MUPIROCIN [Concomitant]
     Active Substance: MUPIROCIN

REACTIONS (7)
  - Ulcerative keratitis [Not Recovered/Not Resolved]
  - Rash [Unknown]
  - Erythema [Unknown]
  - Pruritus [Unknown]
  - Swelling face [Unknown]
  - Skin ulcer [Not Recovered/Not Resolved]
  - Off label use [Unknown]

NARRATIVE: CASE EVENT DATE: 20201201
